FAERS Safety Report 4620905-6 (Version None)
Quarter: 2005Q1

REPORT INFORMATION
  Report Type: 
  Country: None (occurrence: None)
  Receive Date: 20050328
  Receipt Date: 20050313
  Transmission Date: 20050727
  Serious: Yes (Hospitalization)
  Sender: FDA-Public Use
  Company Number: HQWYE145615MAR05

PATIENT
  Sex: Male

DRUGS (1)
  1. ENBREL [Suspect]
     Indication: DRUG USE FOR UNKNOWN INDICATION
     Dosage: NOT PROVIDED

REACTIONS (1)
  - ARTHRITIS BACTERIAL [None]
